FAERS Safety Report 14276189 (Version 2)
Quarter: 2018Q1

REPORT INFORMATION
  Report Type: Spontaneous
  Country: US (occurrence: US)
  Receive Date: 20171212
  Receipt Date: 20180102
  Transmission Date: 20180508
  Serious: Yes (Other)
  Sender: FDA-Public Use
  Company Number: US-PFIZER INC-2017525631

PATIENT
  Age: 6 Month
  Sex: Male
  Weight: 6.3 kg

DRUGS (29)
  1. CALCIUM [Concomitant]
     Active Substance: CALCIUM
     Dosage: 560 MG, DAILY (PRE-CINACALCET, TIME, WK:  -6.1)
  2. CALCITRIOL. [Concomitant]
     Active Substance: CALCITRIOL
     Dosage: 0.15 UG, DAILY (CINACALCET COURSE A, TIME, WK: 0.6, 1.0, 1.6, 2.0)
  3. CALCIUM [Concomitant]
     Active Substance: CALCIUM
     Indication: NUTRITIONAL SUPPLEMENTATION
     Dosage: 560 MG, DAILY (PRE-CINACALCET, TIME, WK: -7.0)
  4. CALCIUM [Concomitant]
     Active Substance: CALCIUM
     Dosage: 760 MG, DAILY (CINACALCET COURSE B, TIME, WK: 14.5)
  5. CALCITRIOL. [Concomitant]
     Active Substance: CALCITRIOL
     Indication: HYPOCALCAEMIA
     Dosage: 0.15 UG, DAILY (PRE-CINACALCET, TIME, WK: -6.1)
  6. CALCITRIOL. [Concomitant]
     Active Substance: CALCITRIOL
     Dosage: 0.15 UG, DAILY (PRE-CINACALCET, TIME, WK: 0.0)
  7. FUROSEMIDE. [Suspect]
     Active Substance: FUROSEMIDE
     Indication: BRONCHOPULMONARY DYSPLASIA
     Dosage: 3 MG/KG, DAILY (3 MG/KG/DAY)
  8. CHLOROTHIAZIDE. [Concomitant]
     Active Substance: CHLOROTHIAZIDE
     Indication: BRONCHOPULMONARY DYSPLASIA
     Dosage: 22.5 MG/KG, DAILY (22.5 MG/KG/DAY)
  9. VITAMIN D [Concomitant]
     Active Substance: CHOLECALCIFEROL
     Indication: NUTRITIONAL SUPPLEMENTATION
     Dosage: 260 IU, DAILY
  10. CALCIUM [Concomitant]
     Active Substance: CALCIUM
     Dosage: 280 MG, DAILY (PRE-CINACALCET, TIME, WK: 0.0)
  11. PHOSPHORUS [Concomitant]
     Active Substance: PHOSPHORUS
     Indication: NUTRITIONAL SUPPLEMENTATION
     Dosage: 437 MG, DAILY
  12. CALCIUM [Concomitant]
     Active Substance: CALCIUM
     Dosage: 560 MG, DAILY (PRE-CINACALCET, TIME, WK: -3.4)
  13. CALCIUM [Concomitant]
     Active Substance: CALCIUM
     Dosage: 560 MG, DAILY (PRE-CINACALCET, TIME, WK: -2.6)
  14. CALCIUM [Concomitant]
     Active Substance: CALCIUM
     Dosage: 600 MG, DAILY (CINACALCET COURSE A (OFF CINACALCET), TIME, WK: 2.6, 3.6)
  15. CALCIUM [Concomitant]
     Active Substance: CALCIUM
     Dosage: 780 MG, DAILY (CINACALCET COURSE B, TIME, WK: 6.6, 8.0, 9.0, 10.5, 11.5, 12.5, 13.5)
  16. CALCITRIOL. [Concomitant]
     Active Substance: CALCITRIOL
     Dosage: 0.30 UG, DAILY (PRE-CINACALCET, TIME, WK: -2.6)
  17. PREDNISONE. [Concomitant]
     Active Substance: PREDNISONE
     Indication: BRONCHOPULMONARY DYSPLASIA
     Dosage: 0.5 MG/KG, UNK (EVERY 48 HOURS)
  18. CALCITRIOL. [Concomitant]
     Active Substance: CALCITRIOL
     Dosage: 0.15 UG, DAILY (CINACALCET COURSE B, TIME, WK: 4.6, 6.6, 8.0, 9.0, 10.5, 11.5)
  19. CALCIUM [Concomitant]
     Active Substance: CALCIUM
     Dosage: 560 MG, DAILY (PRE-CINACALCET, TIME, WK: -5.0)
  20. CALCIUM [Concomitant]
     Active Substance: CALCIUM
     Dosage: 600 MG, DAILY (CINACALCET COURSE B, TIME, WK: 4.6)
  21. CALCITRIOL. [Concomitant]
     Active Substance: CALCITRIOL
     Indication: MINERAL SUPPLEMENTATION
     Dosage: 0.30 UG, DAILY (PRE-CINACALCET, TIME, WK: -5.0)
  22. CALCITRIOL. [Concomitant]
     Active Substance: CALCITRIOL
     Dosage: 0.30 UG, DAILY (PRE-CINACALCET, TIME, WK: -3.4)
  23. CALCITRIOL. [Concomitant]
     Active Substance: CALCITRIOL
     Dosage: 0.15 UG, DAILY (CINACALCET COURSE A (OFF CINACALCET), TIME, WK: 2.6, 3.6)
  24. CALCIUM [Concomitant]
     Active Substance: CALCIUM
     Dosage: 280 MG, DAILY (PRE-CINACALCET, TIME, WK: -1.4)
  25. CALCITRIOL. [Concomitant]
     Active Substance: CALCITRIOL
     Dosage: 0.15 UG, DAILY (PRE-CINACALCET, TIME, WK: -1.4)
  26. CALCIUM [Concomitant]
     Active Substance: CALCIUM
     Indication: MINERAL SUPPLEMENTATION
     Dosage: 603 MG, DAILY
  27. CALCIUM [Concomitant]
     Active Substance: CALCIUM
     Dosage: 280 MG, DAILY (CINACALCET COURSE A, TIME, WK: 0.6, 1.0, 1.6)
  28. CALCIUM [Concomitant]
     Active Substance: CALCIUM
     Dosage: 600 MG, DAILY (CINACALCET COURSE A, TIME, WK: 2.0)
  29. CALCIUM [Concomitant]
     Active Substance: CALCIUM
     Dosage: 240 MG, DAILY (CINACALCET COURSE B, TIME, WK: 15.5)

REACTIONS (1)
  - Hyperparathyroidism secondary [Recovered/Resolved]
